FAERS Safety Report 24904529 (Version 5)
Quarter: 2025Q3

REPORT INFORMATION
  Report Type: Report from Study
  Country: US (occurrence: US)
  Receive Date: 20250130
  Receipt Date: 20250724
  Transmission Date: 20251020
  Serious: No
  Sender: SUNOVION
  Company Number: US-SUMITOMO PHARMA SWITZERLAND GMBH-2025SPA000757

PATIENT

DRUGS (22)
  1. ORGOVYX [Suspect]
     Active Substance: RELUGOLIX
     Indication: Prostate cancer
     Dosage: 120 MG, QD
     Route: 048
     Dates: start: 20250117
  2. ERLEADA [Concomitant]
     Active Substance: APALUTAMIDE
     Route: 065
  3. ALEVE [Concomitant]
     Active Substance: NAPROXEN SODIUM
     Route: 048
  4. Alka seltzer plus allergy [Concomitant]
     Route: 065
  5. AMOXICILLIN [Concomitant]
     Active Substance: AMOXICILLIN
     Route: 048
  6. Azo Max [Concomitant]
     Route: 065
  7. CALCIUM\VITAMIN D [Concomitant]
     Active Substance: CALCIUM\VITAMIN D
     Route: 048
  8. JARDIANCE [Concomitant]
     Active Substance: EMPAGLIFLOZIN
     Route: 048
  9. LIDOCAINE [Concomitant]
     Active Substance: LIDOCAINE
     Route: 065
  10. Lotrimin [Concomitant]
     Route: 065
  11. MIRALAX [Concomitant]
     Active Substance: POLYETHYLENE GLYCOL 3350
     Route: 048
  12. NEXIUM [Concomitant]
     Active Substance: ESOMEPRAZOLE MAGNESIUM
     Route: 048
  13. PANTOPRAZOLE [Concomitant]
     Active Substance: PANTOPRAZOLE
     Route: 048
  14. PREDNISONE [Concomitant]
     Active Substance: PREDNISONE
     Route: 048
  15. ROSUVASTATIN [Concomitant]
     Active Substance: ROSUVASTATIN
     Route: 048
  16. TADALAFIL [Concomitant]
     Active Substance: TADALAFIL
     Route: 048
  17. TAMSULOSIN [Concomitant]
     Active Substance: TAMSULOSIN
     Route: 048
  18. TYLENOL [Concomitant]
     Active Substance: ACETAMINOPHEN
     Route: 048
  19. VENTOLIN HFA [Concomitant]
     Active Substance: ALBUTEROL SULFATE
     Route: 055
  20. CEPHALEXIN [Concomitant]
     Active Substance: CEPHALEXIN
     Route: 048
  21. FLEET ENEMA [Concomitant]
     Active Substance: SODIUM PHOSPHATE, DIBASIC\SODIUM PHOSPHATE, MONOBASIC
     Route: 054
  22. ZYRTEC [Concomitant]
     Active Substance: CETIRIZINE HYDROCHLORIDE
     Route: 065

REACTIONS (16)
  - Dysuria [Unknown]
  - Sleep disorder [Recovered/Resolved]
  - Gastrooesophageal reflux disease [Unknown]
  - Rash pruritic [Unknown]
  - Limb discomfort [Unknown]
  - Sciatica [Unknown]
  - Skin abrasion [Unknown]
  - Muscular weakness [Unknown]
  - Decreased appetite [Unknown]
  - Weight decreased [Unknown]
  - Rash [Unknown]
  - Diarrhoea [Unknown]
  - Fatigue [Unknown]
  - Insomnia [Unknown]
  - Pain in extremity [Unknown]
  - Incorrect dose administered [Unknown]
